FAERS Safety Report 16702852 (Version 1)
Quarter: 2019Q3

REPORT INFORMATION
  Report Type: Spontaneous
  Country: US (occurrence: US)
  Receive Date: 20190814
  Receipt Date: 20190814
  Transmission Date: 20191004
  Serious: Yes (Other)
  Sender: FDA-Public Use
  Company Number: US-MYLANLABS-2019M1076401

PATIENT
  Age: 52 Year
  Sex: Female

DRUGS (6)
  1. FLUOROURACIL. [Suspect]
     Active Substance: FLUOROURACIL
     Indication: SMALL INTESTINE CARCINOMA
     Dosage: FOLFOX REGIMEN: RECEIVED 6 CYCLES
     Route: 065
  2. FLUOROURACIL. [Suspect]
     Active Substance: FLUOROURACIL
     Dosage: FOLFIRI REGIMEN
     Route: 065
     Dates: start: 201606
  3. FOLINIC ACID [Concomitant]
     Active Substance: LEUCOVORIN
     Dosage: FOLFOX REGIMEN: RECEIVED 6 CYCLES
     Route: 065
  4. OXALIPLATIN. [Suspect]
     Active Substance: OXALIPLATIN
     Indication: SMALL INTESTINE CARCINOMA
     Dosage: RECEIVED 6 CYCLES
     Route: 065
  5. IRINOTECAN [Suspect]
     Active Substance: IRINOTECAN
     Indication: SMALL INTESTINE CARCINOMA
     Route: 065
     Dates: start: 201606
  6. FOLINIC ACID [Concomitant]
     Active Substance: LEUCOVORIN
     Dosage: FOLFIRI REGIMEN
     Route: 065
     Dates: start: 201606

REACTIONS (1)
  - Drug ineffective [Unknown]
